FAERS Safety Report 5323102-4 (Version None)
Quarter: 2007Q2

REPORT INFORMATION
  Report Type: 
  Country: None (occurrence: None)
  Receive Date: 20070507
  Receipt Date: 20070423
  Transmission Date: 20071010
  Serious: Yes (Death, Life-Threatening, Hospitalization, Other)
  Sender: FDA-Public Use
  Company Number: 2005-11-1118

PATIENT
  Age: 61 Year
  Sex: Male
  Weight: 79 kg

DRUGS (42)
  1. POSACONAZOLE [Suspect]
     Indication: FUNGAL INFECTION
     Dosage: 200 MG; QID; PO
     Route: 048
     Dates: start: 20051103
  2. PROGRAF [Suspect]
     Indication: PROPHYLAXIS AGAINST GRAFT VERSUS HOST DISEASE
     Dosage: 4 MG; PO
     Route: 048
     Dates: start: 20051216, end: 20060223
  3. ACYCLOVIR [Suspect]
     Indication: ANTIVIRAL PROPHYLAXIS
     Dosage: 200 MG; BID; PO
     Route: 048
     Dates: start: 20051222, end: 20060222
  4. SANDIMMUNE [Concomitant]
  5. DECORTIN [Concomitant]
  6. CELLCEPT [Concomitant]
  7. GANCICLOVIR [Concomitant]
  8. BELOC ZOC COMP [Concomitant]
  9. DECORTIN [Concomitant]
  10. KLACID [Concomitant]
  11. MAGNESIUM SULFATE [Concomitant]
  12. LASIX [Concomitant]
  13. DOPAMIN [Concomitant]
  14. CALCIUM CHLORIDE [Concomitant]
  15. KALINOR RET [Concomitant]
  16. PANTOZOL [Concomitant]
  17. METOCLOPRAMIDE [Concomitant]
  18. CYMEVEN [Concomitant]
  19. CIPROFLOXACIN HCL [Concomitant]
  20. AMITRIPTYLINE HCL [Concomitant]
  21. DOXYCICLIN [Concomitant]
  22. ZYVOX [Concomitant]
  23. ENTOCORT [Concomitant]
  24. .. [Concomitant]
  25. AVELOX [Concomitant]
  26. ALBUMIN (HUMAN) [Concomitant]
  27. FORTUM [Concomitant]
  28. LOPEDUM [Concomitant]
  29. ELOBACT [Concomitant]
  30. ENTOCORT [Concomitant]
  31. ALBUMIN (HUMAN) [Concomitant]
  32. SPIROCOMB [Concomitant]
  33. PERFALGAN [Concomitant]
  34. MERONEM [Concomitant]
  35. OMEPRAZOLE [Concomitant]
  36. ARTERNOL [Concomitant]
  37. KYBERNIN [Concomitant]
  38. MIRTAZAPINE [Concomitant]
  39. PARACETAMOL [Concomitant]
  40. . [Concomitant]
  41. METOPROLOL SUCCINATE [Concomitant]
  42. KALINOR RET [Concomitant]

REACTIONS (30)
  - ACUTE GRAFT VERSUS HOST DISEASE IN INTESTINE [None]
  - ACUTE GRAFT VERSUS HOST DISEASE IN SKIN [None]
  - CHOLELITHIASIS [None]
  - CHOLESTASIS [None]
  - CONSTIPATION [None]
  - CONVULSION [None]
  - CYSTITIS [None]
  - CYTOMEGALOVIRUS INFECTION [None]
  - DEHYDRATION [None]
  - DISEASE PROGRESSION [None]
  - DRY SKIN [None]
  - EPSTEIN-BARR VIRUS INFECTION [None]
  - GASTRIC ULCER HAEMORRHAGE [None]
  - HEPATIC CONGESTION [None]
  - HEPATIC FAILURE [None]
  - HEPATIC FIBROSIS [None]
  - HEPATIC SIDEROSIS [None]
  - HEPATOCELLULAR DAMAGE [None]
  - HUMAN HERPESVIRUS 6 INFECTION [None]
  - LEUKOPENIA [None]
  - NEPHROPATHY TOXIC [None]
  - NO THERAPEUTIC RESPONSE [None]
  - PNEUMONIA [None]
  - PULMONARY EMBOLISM [None]
  - REFUSAL OF TREATMENT BY PATIENT [None]
  - RENAL CYST [None]
  - RENAL FAILURE [None]
  - RIGHT VENTRICULAR FAILURE [None]
  - SEPSIS [None]
  - SYNCOPE [None]
